FAERS Safety Report 20857142 (Version 2)
Quarter: 2022Q2

REPORT INFORMATION
  Report Type: Spontaneous
  Country: US (occurrence: US)
  Receive Date: 20220520
  Receipt Date: 20220604
  Transmission Date: 20220720
  Serious: No
  Sender: FDA-Public Use
  Company Number: US-SA-SAC20220516001329

PATIENT
  Age: 59 Year
  Sex: Female

DRUGS (1)
  1. DUPIXENT [Suspect]
     Active Substance: DUPILUMAB
     Indication: Drug therapy
     Dosage: 600 MG, TOTAL
     Route: 058
     Dates: start: 2019

REACTIONS (3)
  - Rash [Recovered/Resolved]
  - Product used for unknown indication [Unknown]
  - Unevaluable event [Unknown]
